FAERS Safety Report 15907068 (Version 2)
Quarter: 2019Q1

REPORT INFORMATION
  Report Type: Spontaneous
  Country: US (occurrence: US)
  Receive Date: 20190204
  Receipt Date: 20190325
  Transmission Date: 20190417
  Serious: No
  Sender: FDA-Public Use
  Company Number: US-ASTRAZENECA-2019SE13406

PATIENT
  Age: 4269 Week
  Sex: Female

DRUGS (3)
  1. BYDUREON BCISE [Suspect]
     Active Substance: EXENATIDE
     Indication: BLOOD GLUCOSE INCREASED
     Route: 058
  2. JARDIANCE [Concomitant]
     Active Substance: EMPAGLIFLOZIN
     Indication: DIABETES MELLITUS
  3. BYDUREON [Suspect]
     Active Substance: EXENATIDE
     Dosage: ONCE A WEEK
     Route: 065

REACTIONS (6)
  - Injection site haemorrhage [Unknown]
  - Device malfunction [Unknown]
  - Injection site pain [Unknown]
  - Circumstance or information capable of leading to medication error [Unknown]
  - Dental caries [Unknown]
  - Device leakage [Unknown]

NARRATIVE: CASE EVENT DATE: 20190111
